FAERS Safety Report 16540318 (Version 1)
Quarter: 2019Q3

REPORT INFORMATION
  Report Type: Spontaneous
  Country: US (occurrence: US)
  Receive Date: 20190524
  Receipt Date: 20190524
  Transmission Date: 20191004
  Serious: Yes (Hospitalization)
  Sender: FDA-Public Use
  Company Number: None

PATIENT
  Age: 57 Year
  Sex: Male
  Weight: 94.35 kg

DRUGS (2)
  1. RANOLAZINE. [Suspect]
     Active Substance: RANOLAZINE
     Indication: CORONARY ARTERY DISEASE
     Route: 048
     Dates: start: 20181112, end: 20181217
  2. TORSEMIDE. [Suspect]
     Active Substance: TORSEMIDE
     Route: 048
     Dates: start: 20181123

REACTIONS (5)
  - Drug monitoring procedure not performed [None]
  - Syncope [None]
  - Asthenia [None]
  - Dizziness [None]
  - Blood glucose increased [None]

NARRATIVE: CASE EVENT DATE: 20181217
